FAERS Safety Report 6378680-3 (Version None)
Quarter: 2009Q3

REPORT INFORMATION
  Report Type: 
  Country: None (occurrence: None)
  Receive Date: 20090928
  Receipt Date: 20090922
  Transmission Date: 20100115
  Serious: Yes (Hospitalization, Other)
  Sender: FDA-Public Use
  Company Number: US-AMGEN-KDL352528

PATIENT
  Sex: Male
  Weight: 66.3 kg

DRUGS (2)
  1. PROCRIT [Suspect]
     Indication: DRUG USE FOR UNKNOWN INDICATION
  2. HYDROXYUREA [Concomitant]

REACTIONS (3)
  - ANAEMIA MACROCYTIC [None]
  - LEUKOCYTOSIS [None]
  - THROMBOCYTOPENIA [None]
